FAERS Safety Report 11326738 (Version 1)
Quarter: 2015Q3

REPORT INFORMATION
  Report Type: Spontaneous
  Country: NL (occurrence: NL)
  Receive Date: 20150731
  Receipt Date: 20150731
  Transmission Date: 20151125
  Serious: Yes (Other)
  Sender: FDA-Public Use
  Company Number: NL-009507513-1506NLD006438

PATIENT
  Age: 16 Year
  Sex: Female

DRUGS (1)
  1. IMPLANON [Suspect]
     Active Substance: ETONOGESTREL
     Dosage: UNK
     Dates: start: 20140612, end: 20150713

REACTIONS (9)
  - General anaesthesia [Unknown]
  - Device deployment issue [Recovered/Resolved]
  - Device difficult to use [Recovered/Resolved]
  - Device difficult to use [Recovered/Resolved]
  - Medical device complication [Recovered/Resolved]
  - Off label use [Recovered/Resolved]
  - Menometrorrhagia [Unknown]
  - Surgery [Unknown]
  - Complication of device removal [Recovered/Resolved]

NARRATIVE: CASE EVENT DATE: 20140612
